FAERS Safety Report 9909153 (Version 2)
Quarter: 2014Q1

REPORT INFORMATION
  Report Type: Spontaneous
  Country: US (occurrence: None)
  Receive Date: 20140212
  Receipt Date: 20140312
  Transmission Date: 20141002
  Serious: Yes (Hospitalization)
  Sender: FDA-Public Use
  Company Number: UTC-044596

PATIENT
  Age: 56 Year
  Sex: Female
  Weight: 54.5 kg

DRUGS (2)
  1. TYVASO (0.6 MICROGRAM AEROSOL FOR INHALATION) (TREPOSTINIL SODIUM) [Suspect]
     Indication: COR PULMONALE CHRONIC
     Route: 055
     Dates: start: 20130531
  2. REVATIO (SILDENAFIL CITRATE) [Concomitant]

REACTIONS (3)
  - Intestinal obstruction [None]
  - Blood potassium decreased [None]
  - Pneumonia [None]
